FAERS Safety Report 18740031 (Version 1)
Quarter: 2021Q1

REPORT INFORMATION
  Report Type: Spontaneous
  Country: CN (occurrence: CN)
  Receive Date: 20210114
  Receipt Date: 20210114
  Transmission Date: 20210419
  Serious: Yes (Life-Threatening, Hospitalization, Other)
  Sender: FDA-Public Use
  Company Number: CN-JNJFOC-20210113936

PATIENT
  Age: 85 Year
  Sex: Male
  Weight: 67 kg

DRUGS (2)
  1. BAYASPIRIN 100 MG [Suspect]
     Active Substance: ASPIRIN
     Indication: ISCHAEMIC HEART DISEASE PROPHYLAXIS
     Dosage: 100 MG, QD
     Route: 048
     Dates: start: 20200820, end: 20201212
  2. RIVAROXABAN [Suspect]
     Active Substance: RIVAROXABAN
     Indication: ARTERIOSCLEROSIS CORONARY ARTERY
     Dosage: 10 MG, QD
     Route: 048
     Dates: start: 20200820, end: 20201212

REACTIONS (13)
  - Nausea [Recovering/Resolving]
  - Haematemesis [Recovering/Resolving]
  - Off label use [Unknown]
  - Metabolic acidosis [Unknown]
  - Haematochezia [Recovering/Resolving]
  - Melaena [Recovering/Resolving]
  - Respiratory disorder [Unknown]
  - Chest discomfort [Recovering/Resolving]
  - Upper gastrointestinal haemorrhage [Recovering/Resolving]
  - Gastric ulcer [Unknown]
  - Gastric mucosal lesion [Unknown]
  - Product use in unapproved indication [Unknown]
  - Shock haemorrhagic [Unknown]

NARRATIVE: CASE EVENT DATE: 20200820
